FAERS Safety Report 4465295-7 (Version None)
Quarter: 2004Q4

REPORT INFORMATION
  Report Type: 
  Country: None (occurrence: None)
  Receive Date: 20041004
  Receipt Date: 20040922
  Transmission Date: 20050328
  Serious: Yes (Hospitalization)
  Sender: FDA-Public Use
  Company Number: US-MERCK-0409USA01803

PATIENT
  Age: 22 Year
  Sex: Male

DRUGS (3)
  1. CLONAZEPAM [Concomitant]
     Indication: ANXIETY
     Route: 065
  2. RISPERIDONE [Suspect]
     Route: 065
  3. ZOCOR [Suspect]
     Indication: HYPERLIPIDAEMIA
     Route: 048

REACTIONS (4)
  - COMPARTMENT SYNDROME [None]
  - DRUG INTERACTION [None]
  - MUSCLE NECROSIS [None]
  - RHABDOMYOLYSIS [None]
